FAERS Safety Report 4491027-2 (Version None)
Quarter: 2004Q4

REPORT INFORMATION
  Report Type: 
  Country: None (occurrence: None)
  Receive Date: 20041102
  Receipt Date: 20040510
  Transmission Date: 20050328
  Serious: Yes (Hospitalization, Other)
  Sender: FDA-Public Use
  Company Number: US-MERCK-0405USA00638

PATIENT
  Age: 64 Year
  Sex: Male
  Weight: 91 kg

DRUGS (6)
  1. VIOXX [Suspect]
     Indication: RHEUMATOID ARTHRITIS
     Route: 048
     Dates: start: 19990701, end: 19990730
  2. VIOXX [Suspect]
     Route: 048
     Dates: start: 19990801, end: 20010101
  3. METHOTREXATE [Concomitant]
     Indication: RHEUMATOID ARTHRITIS
     Route: 065
     Dates: start: 19980320, end: 20040415
  4. FOLIC ACID [Concomitant]
     Route: 048
  5. HYDRODIURIL [Suspect]
     Indication: HYPERTENSION
     Route: 048
  6. TOPROL-XL [Concomitant]
     Indication: HYPERTENSION
     Route: 048

REACTIONS (9)
  - BLOOD PRESSURE INCREASED [None]
  - CEREBROVASCULAR ACCIDENT [None]
  - CEREBROVASCULAR DISORDER [None]
  - DIZZINESS [None]
  - PERIPHERAL COLDNESS [None]
  - SENSATION OF PRESSURE IN EAR [None]
  - SINUSITIS [None]
  - STOMACH DISCOMFORT [None]
  - TRANSIENT ISCHAEMIC ATTACK [None]
